FAERS Safety Report 4386245-8 (Version None)
Quarter: 2004Q2

REPORT INFORMATION
  Report Type: 
  Country: None (occurrence: None)
  Receive Date: 20040622
  Receipt Date: 20040607
  Transmission Date: 20050107
  Serious: Yes (Hospitalization, Other)
  Sender: FDA-Public Use
  Company Number: S04-FRA-02631-01

PATIENT
  Sex: Female

DRUGS (3)
  1. MEMANTINE HCL [Suspect]
  2. GALANTAMINE [Suspect]
  3. SERTRALINE HCL [Suspect]

REACTIONS (1)
  - HEPATITIS [None]
